FAERS Safety Report 18981466 (Version 2)
Quarter: 2021Q1

REPORT INFORMATION
  Report Type: Spontaneous
  Country: US (occurrence: US)
  Receive Date: 20210308
  Receipt Date: 20210312
  Transmission Date: 20210420
  Serious: No
  Sender: FDA-Public Use
  Company Number: US-JNJFOC-20210245198

PATIENT
  Age: 56 Year
  Sex: Female
  Weight: 58.57 kg

DRUGS (1)
  1. WOMENS ROGAINE UNSCENTED [Suspect]
     Active Substance: MINOXIDIL
     Indication: ALOPECIA
     Dosage: HALF A CUPFUL.?PRODUCT LAST TIME USE ON 21?FEB?2021
     Route: 061
     Dates: start: 20201220

REACTIONS (2)
  - Expired product administered [Unknown]
  - Product packaging quantity issue [Unknown]

NARRATIVE: CASE EVENT DATE: 20201220
